FAERS Safety Report 12728851 (Version 2)
Quarter: 2016Q4

REPORT INFORMATION
  Report Type: Report from Study
  Country: US (occurrence: US)
  Receive Date: 20160909
  Receipt Date: 20161010
  Transmission Date: 20170207
  Serious: No
  Sender: FDA-Public Use
  Company Number: US-AMGEN-USASL2016116123

PATIENT
  Age: 26 Year
  Sex: Female
  Weight: 84 kg

DRUGS (1)
  1. BLINCYTO [Suspect]
     Active Substance: BLINATUMOMAB
     Indication: ACUTE LYMPHOCYTIC LEUKAEMIA
     Dosage: 9 MCG, CYCLICAL
     Route: 042
     Dates: start: 20160825

REACTIONS (2)
  - Somnolence [Unknown]
  - Headache [Recovering/Resolving]
